FAERS Safety Report 23755649 (Version 2)
Quarter: 2024Q2

REPORT INFORMATION
  Report Type: Spontaneous
  Country: US (occurrence: US)
  Receive Date: 20240418
  Receipt Date: 20240503
  Transmission Date: 20240716
  Serious: Yes (Hospitalization, Other)
  Sender: FDA-Public Use
  Company Number: US-BRISTOL-MYERS SQUIBB COMPANY-2024-049244

PATIENT

DRUGS (6)
  1. ORENCIA [Suspect]
     Active Substance: ABATACEPT
     Indication: Product used for unknown indication
     Route: 042
     Dates: start: 2020
  2. OTEZLA [Suspect]
     Active Substance: APREMILAST
     Indication: Psoriasis
  3. XELJANZ [Suspect]
     Active Substance: TOFACITINIB CITRATE
     Indication: Product used for unknown indication
     Dates: start: 2021
  4. COVID-19 VACCINE [Concomitant]
     Indication: COVID-19 immunisation
     Dates: start: 202102
  5. COSENTYX [Concomitant]
     Active Substance: SECUKINUMAB
  6. WARFARIN [Concomitant]
     Active Substance: WARFARIN
     Dosage: BLOOD THINNER

REACTIONS (5)
  - Drug ineffective [Unknown]
  - Treatment noncompliance [Unknown]
  - Appendicitis perforated [Unknown]
  - COVID-19 [Unknown]
  - Diarrhoea [Unknown]
